FAERS Safety Report 9356994 (Version 1)
Quarter: 2013Q2

REPORT INFORMATION
  Report Type: Spontaneous
  Country: MA (occurrence: MA)
  Receive Date: 20130620
  Receipt Date: 20130620
  Transmission Date: 20140414
  Serious: Yes (Death, Hospitalization)
  Sender: FDA-Public Use
  Company Number: MA-ROCHE-1234546

PATIENT
  Sex: Female

DRUGS (5)
  1. PEGASYS [Suspect]
     Indication: HEPATITIS C
     Route: 051
     Dates: start: 2012, end: 201305
  2. PEGASYS [Suspect]
     Indication: FIBROSIS
  3. COPEGUS [Concomitant]
     Indication: HEPATITIS C
     Dosage: 5 TABLETS PER DAY
     Route: 048
     Dates: start: 2012, end: 201205
  4. COPEGUS [Concomitant]
     Indication: FIBROSIS
     Dosage: 5 TABLETS PER DAY
     Route: 048
     Dates: start: 2012, end: 201205
  5. COPEGUS [Concomitant]
     Dosage: DOSE REDUCED
     Route: 048
     Dates: start: 2012, end: 201205

REACTIONS (4)
  - Tuberculosis [Fatal]
  - Decreased appetite [Not Recovered/Not Resolved]
  - Weight decreased [Not Recovered/Not Resolved]
  - Pain [Not Recovered/Not Resolved]
